FAERS Safety Report 24322181 (Version 1)
Quarter: 2024Q3

REPORT INFORMATION
  Report Type: Report from Study
  Country: US (occurrence: US)
  Receive Date: 20240916
  Receipt Date: 20240916
  Transmission Date: 20241016
  Serious: Yes (Hospitalization)
  Sender: ABBVIE
  Company Number: US-ABBVIE-5921564

PATIENT
  Sex: Female

DRUGS (1)
  1. RINVOQ [Suspect]
     Active Substance: UPADACITINIB
     Indication: Rheumatoid arthritis
     Route: 048
     Dates: start: 20211026

REACTIONS (5)
  - Septic shock [Recovered/Resolved]
  - Immunosuppression [Recovering/Resolving]
  - Hepatic enzyme increased [Recovering/Resolving]
  - Renal impairment [Recovering/Resolving]
  - Herpes virus infection [Not Recovered/Not Resolved]
